FAERS Safety Report 13250007 (Version 2)
Quarter: 2017Q1

REPORT INFORMATION
  Report Type: Spontaneous
  Country: US (occurrence: US)
  Receive Date: 20170218
  Receipt Date: 20170307
  Transmission Date: 20170428
  Serious: Yes (Other)
  Sender: FDA-Public Use
  Company Number: PHEH2017US004002

PATIENT
  Sex: Female

DRUGS (3)
  1. LOTREL [Suspect]
     Active Substance: AMLODIPINE BESYLATE\BENAZEPRIL HYDROCHLORIDE
     Dosage: (AMLODIPINE BESILATE 5, BENAZEPRIL HYDROCHLORIDE 10)
     Route: 065
  2. AMLODIPIN BESYLATE AND BENAZEPRIL HYDROCHLORI [Suspect]
     Active Substance: AMLODIPINE BESYLATE\BENAZEPRIL HYDROCHLORIDE
     Indication: PRODUCT USED FOR UNKNOWN INDICATION
     Route: 048
  3. LOTREL [Suspect]
     Active Substance: AMLODIPINE BESYLATE\BENAZEPRIL HYDROCHLORIDE
     Indication: PRODUCT USED FOR UNKNOWN INDICATION
     Dosage: (AMLODIPINE BESILATE 2.5, BENAZEPRIL HYDROCHLORIDE 10)
     Route: 065

REACTIONS (4)
  - Cough [Unknown]
  - Headache [Unknown]
  - Hypotension [Unknown]
  - Heart rate increased [Unknown]
